FAERS Safety Report 18284940 (Version 2)
Quarter: 2021Q3

REPORT INFORMATION
  Report Type: Report from Study
  Country: CA (occurrence: CA)
  Receive Date: 20200918
  Receipt Date: 20210813
  Transmission Date: 20211014
  Serious: Yes (Other)
  Sender: FDA-Public Use
  Company Number: CA-ASTRAZENECA-2020SF17655

PATIENT
  Sex: Male

DRUGS (7)
  1. TEA [Concomitant]
     Active Substance: TEA LEAF
  2. REACTNE [Concomitant]
     Dosage: 5.0MG UNKNOWN
  3. TYLENOL [Concomitant]
     Active Substance: ACETAMINOPHEN
  4. CENTRUM MULTIVITAMIN [Concomitant]
  5. CALQUENCE [Suspect]
     Active Substance: ACALABRUTINIB
     Indication: CHRONIC LYMPHOCYTIC LEUKAEMIA
     Route: 048
     Dates: start: 20200215
  6. CALCIUM CARBONATE. [Concomitant]
     Active Substance: CALCIUM CARBONATE
  7. ROBAX [Concomitant]
     Active Substance: IBUPROFEN\METHOCARBAMOL

REACTIONS (4)
  - Cataract [Unknown]
  - Eye inflammation [Unknown]
  - Ocular vascular disorder [Unknown]
  - Vision blurred [Unknown]
